FAERS Safety Report 25578224 (Version 1)
Quarter: 2025Q3

REPORT INFORMATION
  Report Type: Spontaneous
  Country: US (occurrence: US)
  Receive Date: 20250718
  Receipt Date: 20250718
  Transmission Date: 20251021
  Serious: Yes (Disabling)
  Sender: LA JOLLA PHARMACEUTICAL
  Company Number: US-LA JOLLA PHARMA, LLC-2025-ISTX-000128

PATIENT

DRUGS (9)
  1. GIAPREZA [Suspect]
     Active Substance: ANGIOTENSIN II
     Indication: Toxic shock syndrome streptococcal
     Route: 065
  2. NOREPINEPHRINE [Concomitant]
     Active Substance: NOREPINEPHRINE
     Indication: Toxic shock syndrome streptococcal
  3. VASOPRESSIN [Concomitant]
     Active Substance: VASOPRESSIN
     Indication: Toxic shock syndrome streptococcal
  4. VANCOMYCIN [Concomitant]
     Active Substance: VANCOMYCIN
     Indication: Product used for unknown indication
  5. CEFEPIME [Concomitant]
     Active Substance: CEFEPIME HYDROCHLORIDE
     Indication: Product used for unknown indication
  6. CLINDAMYCIN [Concomitant]
     Active Substance: CLINDAMYCIN
     Indication: Product used for unknown indication
  7. LINEZOLID [Concomitant]
     Active Substance: LINEZOLID
     Indication: Product used for unknown indication
  8. CEFTRIAXONE [Concomitant]
     Active Substance: CEFTRIAXONE
     Indication: Product used for unknown indication
  9. HUMAN IMMUNOGLOBULIN G [Concomitant]
     Active Substance: HUMAN IMMUNOGLOBULIN G
     Indication: Product used for unknown indication
     Route: 042

REACTIONS (1)
  - Purpura fulminans [Unknown]
